FAERS Safety Report 23612234 (Version 1)
Quarter: 2024Q1

REPORT INFORMATION
  Report Type: Spontaneous
  Country: FR (occurrence: FR)
  Receive Date: 20240308
  Receipt Date: 20240308
  Transmission Date: 20240410
  Serious: Yes (Other)
  Sender: FDA-Public Use
  Company Number: None

PATIENT
  Age: 84 Year
  Sex: Male

DRUGS (12)
  1. KORSUVA [Suspect]
     Active Substance: DIFELIKEFALIN ACETATE
     Indication: Pruritus
     Route: 042
     Dates: start: 202309, end: 20240125
  2. UMULINE [Concomitant]
     Active Substance: INSULIN HUMAN
  3. IMOVANE [Concomitant]
     Active Substance: ZOPICLONE
  4. FUROSEMIDE [Concomitant]
     Active Substance: FUROSEMIDE
  5. ESCITALOPRAM OXALATE [Concomitant]
     Active Substance: ESCITALOPRAM OXALATE
  6. ELIQUIS [Concomitant]
     Active Substance: APIXABAN
  7. ALFUZOSIN [Concomitant]
     Active Substance: ALFUZOSIN
  8. VILDAGLIPTIN [Concomitant]
     Active Substance: VILDAGLIPTIN
  9. LERCANIDIPINE [Concomitant]
     Active Substance: LERCANIDIPINE
  10. IRBESARTAN [Concomitant]
     Active Substance: IRBESARTAN
  11. CALTRATE [Concomitant]
     Active Substance: CALCIUM CARBONATE
  12. PANTOPRAZOLE [Concomitant]
     Active Substance: PANTOPRAZOLE

REACTIONS (4)
  - Nightmare [Recovering/Resolving]
  - Hallucination, visual [Recovering/Resolving]
  - Somnolence [Recovering/Resolving]
  - Confusional state [Recovering/Resolving]
